FAERS Safety Report 5219562-X (Version None)
Quarter: 2007Q1

REPORT INFORMATION
  Report Type: 
  Country: None (occurrence: None)
  Receive Date: 20070125
  Receipt Date: 20070102
  Transmission Date: 20070707
  Serious: Yes (Hospitalization, Other)
  Sender: FDA-Public Use
  Company Number: US-PFIZER INC-2006140327

PATIENT
  Sex: Female
  Weight: 49.9 kg

DRUGS (2)
  1. CELEBREX [Suspect]
     Indication: SYSTEMIC LUPUS ERYTHEMATOSUS
  2. CELEBREX [Suspect]
     Indication: ARTHRALGIA

REACTIONS (3)
  - HEART RATE ABNORMAL [None]
  - MYOCARDIAL INFARCTION [None]
  - VISION BLURRED [None]
